FAERS Safety Report 16930705 (Version 1)
Quarter: 2019Q4

REPORT INFORMATION
  Report Type: Spontaneous
  Country: US (occurrence: US)
  Receive Date: 20191017
  Receipt Date: 20191017
  Transmission Date: 20200122
  Serious: No
  Sender: FDA-Public Use
  Company Number: None

PATIENT
  Sex: Female

DRUGS (1)
  1. RISPERIDONE (MAYBE UNDER RISPERIDAL) 2 MILLIGRAMS [Suspect]
     Active Substance: RISPERIDONE

REACTIONS (1)
  - Lactation disorder [None]
